FAERS Safety Report 18391560 (Version 1)
Quarter: 2020Q4

REPORT INFORMATION
  Report Type: Spontaneous
  Country: US (occurrence: US)
  Receive Date: 20201015
  Receipt Date: 20201015
  Transmission Date: 20210114
  Serious: Yes (Hospitalization, Other)
  Sender: FDA-Public Use
  Company Number: None

PATIENT
  Age: 76 Year
  Sex: Female

DRUGS (11)
  1. HUMIRA [Suspect]
     Active Substance: ADALIMUMAB
     Indication: COLITIS ULCERATIVE
     Dosage: ?          OTHER DOSE:1 PEN;?
     Route: 058
     Dates: start: 20160223
  2. IRBESARTAN. [Suspect]
     Active Substance: IRBESARTAN
  3. RESTASIS [Concomitant]
     Active Substance: CYCLOSPORINE
  4. AZELASTINE. [Suspect]
     Active Substance: AZELASTINE HYDROCHLORIDE
  5. PAZEO [Suspect]
     Active Substance: OLOPATADINE HYDROCHLORIDE
  6. ATORVASTATIN [Suspect]
     Active Substance: ATORVASTATIN
  7. COLESTIPOL [Suspect]
     Active Substance: COLESTIPOL
  8. FLUOROMETHOL OP [Concomitant]
  9. FOLIC ACID. [Suspect]
     Active Substance: FOLIC ACID
  10. LEVOTHYROXIN [Suspect]
     Active Substance: LEVOTHYROXINE
  11. VITAMIN D3 [Suspect]
     Active Substance: CHOLECALCIFEROL

REACTIONS (2)
  - Therapy interrupted [None]
  - Breast cancer female [None]

NARRATIVE: CASE EVENT DATE: 20200913
